FAERS Safety Report 20638538 (Version 1)
Quarter: 2022Q1

REPORT INFORMATION
  Report Type: Spontaneous
  Country: US (occurrence: US)
  Receive Date: 20220325
  Receipt Date: 20220325
  Transmission Date: 20220423
  Serious: Yes (Other)
  Sender: FDA-Public Use
  Company Number: US-BRACCO-2022US01029

PATIENT

DRUGS (4)
  1. MULTIHANCE [Suspect]
     Active Substance: GADOBENATE DIMEGLUMINE
     Indication: Magnetic resonance imaging
     Dosage: UNK, SINGLE
  2. MAGNEVIST [Suspect]
     Active Substance: GADOPENTETATE DIMEGLUMINE
     Indication: Magnetic resonance imaging
  3. OMNISCAN [Suspect]
     Active Substance: GADODIAMIDE
     Indication: Magnetic resonance imaging
  4. GADOBUTROL [Suspect]
     Active Substance: GADOBUTROL
     Indication: Magnetic resonance imaging

REACTIONS (2)
  - Gadolinium deposition disease [Unknown]
  - Paraesthesia [Unknown]
